FAERS Safety Report 13531223 (Version 2)
Quarter: 2017Q2

REPORT INFORMATION
  Report Type: Spontaneous
  Country: US (occurrence: US)
  Receive Date: 20170510
  Receipt Date: 20170627
  Transmission Date: 20170830
  Serious: No
  Sender: FDA-Public Use
  Company Number: US-PFIZER INC-2017203203

PATIENT
  Age: 69 Year
  Sex: Female

DRUGS (2)
  1. IBRANCE [Suspect]
     Active Substance: PALBOCICLIB
     Dosage: 75 MG, CYCLIC (QD X 21 DAYS THEN OFF 7 DAYS)
     Route: 048
     Dates: start: 20170612, end: 20170619
  2. IBRANCE [Suspect]
     Active Substance: PALBOCICLIB
     Dosage: UNK
     Dates: start: 20170413, end: 20170427

REACTIONS (4)
  - Oropharyngeal pain [Not Recovered/Not Resolved]
  - Stomatitis [Unknown]
  - Dysphonia [Unknown]
  - Swollen tongue [Unknown]

NARRATIVE: CASE EVENT DATE: 201704
